FAERS Safety Report 14155223 (Version 2)
Quarter: 2018Q1

REPORT INFORMATION
  Report Type: Spontaneous
  Country: US (occurrence: US)
  Receive Date: 20171103
  Receipt Date: 20180129
  Transmission Date: 20180508
  Serious: Yes (Other)
  Sender: FDA-Public Use
  Company Number: US-AMGEN-USASP2017163757

PATIENT
  Sex: Female

DRUGS (1)
  1. PROLIA [Suspect]
     Active Substance: DENOSUMAB
     Indication: OSTEOPOROSIS POSTMENOPAUSAL
     Dosage: 60 MG, UNK
     Route: 065
     Dates: start: 20170814

REACTIONS (5)
  - Bone disorder [Unknown]
  - Macular degeneration [Unknown]
  - Candida infection [Unknown]
  - Tooth disorder [Unknown]
  - Periodontal disease [Unknown]

NARRATIVE: CASE EVENT DATE: 2017
